FAERS Safety Report 5484922-9 (Version None)
Quarter: 2007Q4

REPORT INFORMATION
  Report Type: 
  Country: None (occurrence: None)
  Receive Date: 20071011
  Receipt Date: 20071002
  Transmission Date: 20080405
  Serious: Yes (Other)
  Sender: FDA-Public Use
  Company Number: 2007SP018553

PATIENT
  Age: 58 Year
  Sex: Male
  Weight: 76.2043 kg

DRUGS (2)
  1. PEG-INTRON [Suspect]
     Indication: HEPATITIS C
     Dosage: SC
     Route: 058
     Dates: start: 20070713
  2. RIBAVIRIN [Suspect]
     Indication: HEPATITIS C
     Dosage: PO
     Route: 048
     Dates: start: 20070713

REACTIONS (11)
  - ARRHYTHMIA [None]
  - DECREASED APPETITE [None]
  - DISORIENTATION [None]
  - FATIGUE [None]
  - FEELING OF BODY TEMPERATURE CHANGE [None]
  - HEART RATE INCREASED [None]
  - IMPAIRED WORK ABILITY [None]
  - RED BLOOD CELL COUNT DECREASED [None]
  - THIRST [None]
  - WEIGHT DECREASED [None]
  - WHITE BLOOD CELL COUNT DECREASED [None]
